FAERS Safety Report 22761914 (Version 4)
Quarter: 2024Q1

REPORT INFORMATION
  Report Type: Spontaneous
  Country: US (occurrence: US)
  Receive Date: 20230728
  Receipt Date: 20240125
  Transmission Date: 20240410
  Serious: Yes (Other)
  Sender: FDA-Public Use
  Company Number: US-PFIZER INC-PV202300127022

PATIENT
  Age: 77 Year
  Sex: Female

DRUGS (3)
  1. INLYTA [Suspect]
     Active Substance: AXITINIB
     Dosage: UNK
  2. INLYTA [Suspect]
     Active Substance: AXITINIB
     Dosage: 2 MG PO BID
     Route: 048
  3. INLYTA [Suspect]
     Active Substance: AXITINIB
     Dosage: 3 MG PO BID
     Route: 048

REACTIONS (4)
  - Thrombosis [Not Recovered/Not Resolved]
  - Tremor [Recovered/Resolved]
  - Blood pressure increased [Unknown]
  - Arthralgia [Not Recovered/Not Resolved]
